FAERS Safety Report 8413223-1 (Version None)
Quarter: 2012Q2

REPORT INFORMATION
  Report Type: 
  Country: None (occurrence: None)
  Receive Date: 20120605
  Receipt Date: 20120525
  Transmission Date: 20120825
  Serious: Yes (Other)
  Sender: FDA-Public Use
  Company Number: CN-GILEAD-2012-0055898

PATIENT
  Age: 22 Year
  Sex: Male

DRUGS (3)
  1. LETAIRIS [Suspect]
     Indication: PULMONARY HYPERTENSION
     Dosage: 2.5 MG, UNK
     Route: 048
     Dates: start: 20120412
  2. VIAGRA [Concomitant]
     Indication: PRODUCT USED FOR UNKNOWN INDICATION
     Route: 065
     Dates: start: 20120412
  3. DORNER [Concomitant]
     Indication: PRODUCT USED FOR UNKNOWN INDICATION
     Dosage: 1TAB THREE TIMES PER DAY
     Route: 065
     Dates: start: 20120412, end: 20120511

REACTIONS (5)
  - BLOOD BILIRUBIN INCREASED [None]
  - HEPATIC FUNCTION ABNORMAL [None]
  - ASTHENIA [None]
  - ALANINE AMINOTRANSFERASE INCREASED [None]
  - COUGH [None]
